FAERS Safety Report 7126957-6 (Version None)
Quarter: 2010Q4

REPORT INFORMATION
  Report Type: 
  Country: None (occurrence: None)
  Receive Date: 20101129
  Receipt Date: 20100311
  Transmission Date: 20110411
  Serious: No
  Sender: FDA-Public Use
  Company Number: US-PFIZER INC-2010031693

PATIENT
  Age: 45 Year
  Sex: Male

DRUGS (10)
  1. REVATIO [Suspect]
     Indication: PULMONARY ARTERIAL HYPERTENSION
     Dosage: UNK
     Dates: start: 20090929, end: 20100116
  2. AMBRISENTAN [Suspect]
     Indication: PULMONARY ARTERIAL HYPERTENSION
     Dosage: 10 MG, UNK
     Route: 048
     Dates: start: 20090601, end: 20100116
  3. ALLOPURINOL [Suspect]
     Dosage: UNK
  4. FLOLAN [Suspect]
     Dosage: UNK
  5. WARFARIN SODIUM [Concomitant]
  6. PROTONIX [Concomitant]
  7. LASIX [Concomitant]
  8. DIPROPHYLLINE [Concomitant]
  9. GABAPENTIN [Concomitant]
  10. ADVAIR DISKUS 100/50 [Concomitant]

REACTIONS (3)
  - BLOOD BLISTER [None]
  - OROPHARYNGEAL BLISTERING [None]
  - URTICARIA [None]
